FAERS Safety Report 5282825-6 (Version None)
Quarter: 2007Q2

REPORT INFORMATION
  Report Type: 
  Country: None (occurrence: None)
  Receive Date: 20070402
  Receipt Date: 20070323
  Transmission Date: 20071010
  Serious: Yes (Other)
  Sender: FDA-Public Use
  Company Number: US-JNJFOC-20070306088

PATIENT
  Sex: Female
  Weight: 47.63 kg

DRUGS (17)
  1. DURAGESIC-100 [Suspect]
     Route: 062
  2. DURAGESIC-100 [Suspect]
     Route: 062
  3. DURAGESIC-100 [Suspect]
     Indication: PAIN MANAGEMENT
     Route: 062
  4. PREMARIN [Concomitant]
     Indication: MENOPAUSE
     Route: 048
  5. KLONOPIN [Concomitant]
     Indication: ANXIETY
     Route: 048
  6. ZANAFLEX [Concomitant]
     Indication: MUSCLE SPASMS
     Route: 048
  7. THEOPHYLLINE [Concomitant]
     Indication: CHRONIC OBSTRUCTIVE PULMONARY DISEASE
     Route: 048
  8. LIPITOR [Concomitant]
     Indication: BLOOD CHOLESTEROL INCREASED
     Route: 048
  9. OXYBUTYNIN CHLORIDE [Concomitant]
     Indication: URINARY INCONTINENCE
     Route: 048
  10. NEURONTIN [Concomitant]
     Route: 048
  11. COMBIVENT [Concomitant]
     Indication: CHRONIC OBSTRUCTIVE PULMONARY DISEASE
     Route: 055
  12. AZMACORT [Concomitant]
     Indication: CHRONIC OBSTRUCTIVE PULMONARY DISEASE
     Route: 055
  13. DICYCLOMINE [Concomitant]
     Indication: GASTRITIS
     Route: 048
  14. LORTAB [Concomitant]
     Indication: PAIN
     Route: 048
  15. CALCIUM [Concomitant]
     Indication: NUTRITIONAL SUPPORT
     Route: 048
  16. MULTI-VITAMIN [Concomitant]
  17. MULTI-VITAMIN [Concomitant]
     Indication: NUTRITIONAL SUPPORT
     Route: 048

REACTIONS (4)
  - CARPAL TUNNEL SYNDROME [None]
  - DEVICE LEAKAGE [None]
  - HYPERSOMNIA [None]
  - PRURITUS [None]
